FAERS Safety Report 22208863 (Version 1)
Quarter: 2023Q2

REPORT INFORMATION
  Report Type: Spontaneous
  Country: FR (occurrence: FR)
  Receive Date: 20230413
  Receipt Date: 20230413
  Transmission Date: 20230721
  Serious: Yes (Hospitalization)
  Sender: FDA-Public Use
  Company Number: None

PATIENT
  Age: 47 Year
  Sex: Male
  Weight: 75 kg

DRUGS (2)
  1. PAROXETINE HYDROCHLORIDE [Suspect]
     Active Substance: PAROXETINE HYDROCHLORIDE
     Indication: Poisoning deliberate
     Route: 065
     Dates: start: 20230315, end: 20230315
  2. ACETAMINOPHEN [Suspect]
     Active Substance: ACETAMINOPHEN
     Indication: Poisoning deliberate
     Route: 065
     Dates: start: 20230315, end: 20230315

REACTIONS (4)
  - Prothrombin level decreased [Recovering/Resolving]
  - Hepatic cytolysis [Not Recovered/Not Resolved]
  - Overdose [Recovering/Resolving]
  - Anxiety [Not Recovered/Not Resolved]

NARRATIVE: CASE EVENT DATE: 20230316
